FAERS Safety Report 17870726 (Version 1)
Quarter: 2020Q2

REPORT INFORMATION
  Report Type: Spontaneous
  Country: US (occurrence: US)
  Receive Date: 20200608
  Receipt Date: 20200608
  Transmission Date: 20200714
  Serious: Yes (Hospitalization)
  Sender: FDA-Public Use
  Company Number: US-VERTEX PHARMACEUTICALS-2020-008365

PATIENT
  Age: 9 Year
  Sex: Male

DRUGS (1)
  1. SYMDEKO [Suspect]
     Active Substance: IVACAFTOR\TEZACAFTOR
     Indication: CYSTIC FIBROSIS
     Dosage: UNK
     Route: 048

REACTIONS (4)
  - Clostridium test positive [Unknown]
  - Hospitalisation [Unknown]
  - Pulmonary function test decreased [Unknown]
  - Fungal test positive [Unknown]

NARRATIVE: CASE EVENT DATE: 2020
